FAERS Safety Report 7388452-9 (Version None)
Quarter: 2011Q2

REPORT INFORMATION
  Report Type: 
  Country: None (occurrence: None)
  Receive Date: 20110401
  Receipt Date: 20110330
  Transmission Date: 20111010
  Serious: Yes (Death, Other)
  Sender: FDA-Public Use
  Company Number: GB-PFIZER INC-2011070565

PATIENT
  Age: 34 Year
  Sex: Male

DRUGS (2)
  1. CHAMPIX [Suspect]
     Dosage: UNK
  2. ALCOHOL [Suspect]
     Dosage: UNK

REACTIONS (3)
  - ROAD TRAFFIC ACCIDENT [None]
  - BLOOD ALCOHOL INCREASED [None]
  - ABDOMINAL PAIN [None]
